FAERS Safety Report 6926709-3 (Version None)
Quarter: 2010Q3

REPORT INFORMATION
  Report Type: 
  Country: None (occurrence: None)
  Receive Date: 20100816
  Receipt Date: 20100623
  Transmission Date: 20110219
  Serious: No
  Sender: FDA-Public Use
  Company Number: US-ABBOTT-10P-163-0653928-00

PATIENT
  Sex: Male
  Weight: 79.45 kg

DRUGS (8)
  1. SIMCOR [Suspect]
     Indication: HIGH DENSITY LIPOPROTEIN DECREASED
     Dosage: 500/20MG AT NIGHT FOR 3 NIGHTS
     Dates: start: 20100301, end: 20100301
  2. SIMVASTATIN [Concomitant]
     Indication: BLOOD CHOLESTEROL ABNORMAL
     Dates: start: 20060101, end: 20090101
  3. SIMVASTATIN [Concomitant]
     Indication: CORONARY ARTERY BYPASS
     Dates: start: 20090101, end: 20100601
  4. SIMVASTATIN [Concomitant]
     Dates: start: 20100601
  5. PLAVIX [Concomitant]
     Indication: CORONARY ARTERY BYPASS
  6. METOPROLOL TARTRATE [Concomitant]
     Indication: HYPERTENSION
  7. LISINOPRIL [Concomitant]
     Indication: HYPERTENSION
  8. ASPIRIN [Concomitant]
     Indication: PRODUCT USED FOR UNKNOWN INDICATION

REACTIONS (2)
  - MYALGIA [None]
  - NAUSEA [None]
